FAERS Safety Report 7435099-1 (Version None)
Quarter: 2011Q2

REPORT INFORMATION
  Report Type: 
  Country: None (occurrence: None)
  Receive Date: 20110425
  Receipt Date: 20110412
  Transmission Date: 20111010
  Serious: Yes (Hospitalization)
  Sender: FDA-Public Use
  Company Number: PHHY2011JP23227

PATIENT
  Age: 64 Year
  Sex: Male

DRUGS (11)
  1. RASILEZ [Suspect]
     Indication: HYPERTENSION
     Dosage: 300 MG, UNK
     Route: 048
     Dates: start: 20110201, end: 20110316
  2. MEXITIL [Suspect]
     Dosage: 300 MG, UNK
     Route: 048
     Dates: start: 20110201, end: 20110310
  3. ADALAT CC [Concomitant]
     Dosage: 60 MG, UNK
     Route: 048
  4. LASIX [Concomitant]
     Dosage: 40 MG, UNK
     Route: 048
  5. ALDACTONE [Concomitant]
     Dosage: 0.5 DF, UNK
     Route: 048
  6. MEVALOTIN [Concomitant]
     Dosage: 10 MG, UNK
     Route: 048
  7. PLAVIX [Concomitant]
     Dosage: 75 MG, UNK
     Route: 048
  8. MICARDIS [Suspect]
     Dosage: 80 MG, UNK
     Route: 048
     Dates: start: 20110124, end: 20110311
  9. GASMOTIN [Concomitant]
     Route: 048
  10. ARTIST [Concomitant]
     Route: 048
  11. TAKEPRON [Concomitant]
     Dosage: 10 MG, UNK
     Route: 048

REACTIONS (5)
  - ABDOMINAL HERNIA [None]
  - RASH [None]
  - DRUG ERUPTION [None]
  - LIP OEDEMA [None]
  - ANGIOEDEMA [None]
